FAERS Safety Report 6969109-2 (Version None)
Quarter: 2010Q3

REPORT INFORMATION
  Report Type: 
  Country: None (occurrence: None)
  Receive Date: 20100907
  Receipt Date: 20100901
  Transmission Date: 20110219
  Serious: Yes (Other)
  Sender: FDA-Public Use
  Company Number: IN-ROXANE LABORATORIES, INC.-2010-RO-01172RO

PATIENT
  Age: 27 Year
  Sex: Female

DRUGS (5)
  1. LAMOTRIGINE [Suspect]
     Indication: MYOCLONIC EPILEPSY
     Dosage: 250 MG
  2. CLONAZEPAM [Suspect]
     Indication: INSOMNIA
     Dosage: 0.5 MG
  3. CLONAZEPAM [Suspect]
     Indication: MYOCLONUS
     Dosage: 0.375 MG
  4. CLONAZEPAM [Suspect]
     Dosage: 0.25 MG
  5. FOLIC ACID [Suspect]
     Dosage: 5 MG

REACTIONS (3)
  - DRUG EXPOSURE DURING PREGNANCY [None]
  - DRUG INEFFECTIVE [None]
  - STILLBIRTH [None]
